FAERS Safety Report 11443656 (Version 1)
Quarter: 2015Q3

REPORT INFORMATION
  Report Type: Spontaneous
  Country: US (occurrence: US)
  Receive Date: 20150901
  Receipt Date: 20150901
  Transmission Date: 20151125
  Serious: Yes (Death, Life-Threatening, Other)
  Sender: FDA-Public Use
  Company Number: US-GLAXOSMITHKLINE INC.-US2015GSK125326

PATIENT
  Age: 48 Year
  Sex: Male

DRUGS (1)
  1. MEKINIST [Suspect]
     Active Substance: TRAMETINIB DIMETHYL SULFOXIDE
     Indication: PRODUCT USED FOR UNKNOWN INDICATION
     Dosage: 2 MG, QD
     Dates: start: 201502

REACTIONS (4)
  - Malaise [Unknown]
  - Pulmonary thrombosis [Unknown]
  - Death [Fatal]
  - Rash [Unknown]

NARRATIVE: CASE EVENT DATE: 201502
